FAERS Safety Report 20215403 (Version 1)
Quarter: 2021Q4

REPORT INFORMATION
  Report Type: Spontaneous
  Country: None (occurrence: US)
  Receive Date: 20211222
  Receipt Date: 20211222
  Transmission Date: 20220303
  Serious: No
  Sender: FDA-Public Use
  Company Number: US-Ajanta Pharma USA Inc.-2123252

PATIENT
  Sex: Male

DRUGS (2)
  1. TADALAFIL [Suspect]
     Active Substance: TADALAFIL
     Indication: Erectile dysfunction
  2. SILDENAFIL CITRATE [Suspect]
     Active Substance: SILDENAFIL CITRATE

REACTIONS (2)
  - Drug ineffective [Unknown]
  - Duplicate therapy error [Unknown]

NARRATIVE: CASE EVENT DATE: 20211031
